FAERS Safety Report 12374621 (Version 1)
Quarter: 2016Q2

REPORT INFORMATION
  Report Type: Spontaneous
  Country: US (occurrence: None)
  Receive Date: 20160516
  Receipt Date: 20160516
  Transmission Date: 20160815
  Serious: Yes (Hospitalization)
  Sender: FDA-Public Use
  Company Number: None

PATIENT
  Age: 49 Year
  Sex: Male

DRUGS (7)
  1. KLL [Concomitant]
  2. IBUPROFEN. [Concomitant]
     Active Substance: IBUPROFEN
  3. FUROSEMIDE. [Concomitant]
     Active Substance: FUROSEMIDE
  4. METOPROLOL. [Concomitant]
     Active Substance: METOPROLOL
  5. NORCO [Concomitant]
     Active Substance: ACETAMINOPHEN\HYDROCODONE BITARTRATE
  6. EXJADE [Suspect]
     Active Substance: DEFERASIROX
     Indication: IRON OVERLOAD
     Dosage: 4 TABS QD ORAL
     Route: 048
  7. LISINOPRIL. [Concomitant]
     Active Substance: LISINOPRIL

REACTIONS (1)
  - Joint swelling [None]

NARRATIVE: CASE EVENT DATE: 20160512
